FAERS Safety Report 10329553 (Version 2)
Quarter: 2014Q3

REPORT INFORMATION
  Report Type: Spontaneous
  Country: US (occurrence: US)
  Receive Date: 20140721
  Receipt Date: 20140902
  Transmission Date: 20150326
  Serious: No
  Sender: FDA-Public Use
  Company Number: US-ASTRAZENECA-2014SE50077

PATIENT
  Age: 53 Year
  Sex: Female
  Weight: 56.7 kg

DRUGS (4)
  1. SYNTHROID [Concomitant]
     Active Substance: LEVOTHYROXINE SODIUM
     Indication: HYPOTHYROIDISM
     Route: 048
  2. SYMBICORT [Suspect]
     Active Substance: BUDESONIDE\FORMOTEROL FUMARATE DIHYDRATE
     Indication: ASTHMA
     Dosage: 80/4.5  MCG, 2 PUFFSTWO TIMES A DAY
     Route: 055
     Dates: start: 201405
  3. PROAIR INHALER [Concomitant]
     Dosage: UNKNOWN UNK
     Route: 055
  4. HYDROCORTISONE. [Concomitant]
     Active Substance: HYDROCORTISONE
     Indication: ADDISON^S DISEASE
     Route: 048
     Dates: start: 201311

REACTIONS (4)
  - Exercise tolerance decreased [Unknown]
  - Drug dose omission [Unknown]
  - Poor quality sleep [Unknown]
  - Circumstance or information capable of leading to medication error [Unknown]

NARRATIVE: CASE EVENT DATE: 2014
